FAERS Safety Report 15574454 (Version 1)
Quarter: 2018Q4

REPORT INFORMATION
  Report Type: Spontaneous
  Country: JP (occurrence: JP)
  Receive Date: 20181101
  Receipt Date: 20181101
  Transmission Date: 20190205
  Serious: Yes (Other)
  Sender: FDA-Public Use
  Company Number: JP-SUN PHARMACEUTICAL INDUSTRIES LTD-2018RR-189980

PATIENT
  Age: 61 Year
  Sex: Female

DRUGS (5)
  1. PEMETREXED. [Suspect]
     Active Substance: PEMETREXED
     Dosage: 5 CYCLES
     Route: 065
  2. CARBOPLATIN. [Suspect]
     Active Substance: CARBOPLATIN
     Indication: LUNG ADENOCARCINOMA
     Dosage: 2 CYCLES ON DAY 1
     Route: 065
  3. CARBOPLATIN. [Suspect]
     Active Substance: CARBOPLATIN
     Dosage: 5 CYCLES
     Route: 065
  4. PEMETREXED. [Suspect]
     Active Substance: PEMETREXED
     Dosage: 3 CYCLES ALONE
     Route: 065
  5. PEMETREXED. [Suspect]
     Active Substance: PEMETREXED
     Indication: LUNG ADENOCARCINOMA
     Dosage: 500 MG/M2, ON DAY 1, EVERY 4 WEEKS
     Route: 065

REACTIONS (7)
  - Thrombocytopenia [Recovered/Resolved]
  - Myalgia [Unknown]
  - Decreased appetite [Recovered/Resolved]
  - Neutropenia [Recovered/Resolved]
  - Anaemia [Recovered/Resolved]
  - Oesophagitis [Recovered/Resolved]
  - Dermatitis [Recovered/Resolved]
